FAERS Safety Report 26087470 (Version 2)
Quarter: 2025Q4

REPORT INFORMATION
  Report Type: Report from Study
  Country: US (occurrence: US)
  Receive Date: 20251125
  Receipt Date: 20251229
  Transmission Date: 20260117
  Serious: Yes (Other)
  Sender: PFIZER
  Company Number: US-PFIZER INC-202400320250

PATIENT
  Age: 74 Year
  Sex: Female

DRUGS (3)
  1. IBRANCE [Suspect]
     Active Substance: PALBOCICLIB
     Indication: Intraductal proliferative breast lesion
     Dosage: 125 MG, CYCLIC 1 TABLET PO DAILY X 21 DAYS FOLLOWED BY 7 DAYS OFF
     Route: 048
  2. IBRANCE [Suspect]
     Active Substance: PALBOCICLIB
     Dosage: 125 MG
  3. IBRANCE [Suspect]
     Active Substance: PALBOCICLIB
     Dosage: 1 TAB PO (ORALLY) DAILY X21 DAYS, FOLLOWED BY 7 DAYS OFF
     Route: 048

REACTIONS (3)
  - Macular degeneration [Unknown]
  - Product prescribing error [Unknown]
  - Off label use [Unknown]
